FAERS Safety Report 24862158 (Version 1)
Quarter: 2025Q1

REPORT INFORMATION
  Report Type: Spontaneous
  Country: ES (occurrence: ES)
  Receive Date: 20250120
  Receipt Date: 20250120
  Transmission Date: 20250408
  Serious: Yes (Other)
  Sender: AMGEN
  Company Number: ES-AMGEN-ESPSP2025007039

PATIENT
  Age: 20 Year
  Sex: Female

DRUGS (4)
  1. APREMILAST [Suspect]
     Active Substance: APREMILAST
     Indication: Type 2 lepra reaction
     Route: 065
  2. APREMILAST [Suspect]
     Active Substance: APREMILAST
     Indication: Off label use
  3. UPADACITINIB [Concomitant]
     Active Substance: UPADACITINIB
     Indication: Type 2 lepra reaction
     Dosage: 30 MILLIGRAM, QD
  4. ROFLUMILAST [Concomitant]
     Active Substance: ROFLUMILAST
     Indication: Type 2 lepra reaction

REACTIONS (3)
  - Type 2 lepra reaction [Recovered/Resolved]
  - Off label use [Unknown]
  - Drug effective for unapproved indication [Unknown]
